FAERS Safety Report 13045985 (Version 2)
Quarter: 2016Q4

REPORT INFORMATION
  Report Type: Report from Study
  Country: US (occurrence: US)
  Receive Date: 20161220
  Receipt Date: 20161227
  Transmission Date: 20170207
  Serious: Yes (Other)
  Sender: FDA-Public Use
  Company Number: US-PFIZER INC-2016578292

PATIENT
  Age: 79 Year
  Sex: Female

DRUGS (2)
  1. IBRANCE [Suspect]
     Active Substance: PALBOCICLIB
     Indication: BREAST CANCER
     Dosage: 125 MG, DAILY
     Route: 048
     Dates: start: 20160915
  2. IBRANCE [Suspect]
     Active Substance: PALBOCICLIB
     Dosage: 125 MG, CYCLIC, (125 MG 3 WEEKS ON AND 2 WEEKS OFF)

REACTIONS (6)
  - Mood altered [Unknown]
  - Nightmare [Unknown]
  - Full blood count decreased [Unknown]
  - Epistaxis [Unknown]
  - Nausea [Unknown]
  - Decreased appetite [Unknown]
